FAERS Safety Report 8291694-1 (Version None)
Quarter: 2012Q2

REPORT INFORMATION
  Report Type: 
  Country: None (occurrence: None)
  Receive Date: 20120417
  Receipt Date: 20120105
  Transmission Date: 20120825
  Serious: No
  Sender: FDA-Public Use
  Company Number: US-ASTRAZENECA-2012SE01384

PATIENT
  Age: 99 Year
  Sex: Female

DRUGS (1)
  1. NEXIUM [Suspect]
     Route: 048

REACTIONS (8)
  - MALAISE [None]
  - HEARING IMPAIRED [None]
  - HYPOAESTHESIA [None]
  - GLAUCOMA [None]
  - DIARRHOEA [None]
  - ANAEMIA [None]
  - ABDOMINAL DISCOMFORT [None]
  - GASTRIC DISORDER [None]
